FAERS Safety Report 20567590 (Version 6)
Quarter: 2022Q4

REPORT INFORMATION
  Report Type: Other
  Country: CA (occurrence: None)
  Receive Date: 20220308
  Receipt Date: 20221121
  Transmission Date: 20230112
  Serious: Yes (Hospitalization, Other)
  Sender: FDA-Public Use
  Company Number: CA-ROCHE-2824957

PATIENT
  Age: 67 Year
  Sex: Female
  Weight: 77.1 kg

DRUGS (9)
  1. AVASTIN [Suspect]
     Active Substance: BEVACIZUMAB
     Indication: Hereditary haemorrhagic telangiectasia
     Route: 042
     Dates: start: 20220421, end: 2022
  2. AVASTIN [Suspect]
     Active Substance: BEVACIZUMAB
     Route: 042
     Dates: start: 20210504, end: 20211110
  3. AVASTIN [Suspect]
     Active Substance: BEVACIZUMAB
     Route: 042
     Dates: start: 20220105, end: 20220105
  4. AVASTIN [Suspect]
     Active Substance: BEVACIZUMAB
     Route: 042
     Dates: start: 20220302
  5. ADVAIR HFA [Concomitant]
     Active Substance: FLUTICASONE PROPIONATE\SALMETEROL XINAFOATE
  6. MVASI [Concomitant]
     Active Substance: BEVACIZUMAB-AWWB
  7. VENOFER [Concomitant]
     Active Substance: IRON SUCROSE
  8. ZIRABEV [Concomitant]
     Active Substance: BEVACIZUMAB-BVZR
  9. COVID-19 VACCINE [Concomitant]
     Dosage: SECOND DOSE: 08/JUL/2021
     Dates: start: 20210708

REACTIONS (13)
  - Diverticulitis [Recovering/Resolving]
  - Oxygen saturation decreased [Unknown]
  - Off label use [Unknown]
  - Blood pressure systolic increased [Unknown]
  - COVID-19 [Unknown]
  - Pneumonia [Unknown]
  - Herpes zoster [Recovered/Resolved]
  - Haemoglobin increased [Unknown]
  - Serum ferritin increased [Unknown]
  - Haemoglobin decreased [Unknown]
  - Post herpetic neuralgia [Unknown]
  - Pain in extremity [Unknown]
  - Back pain [Unknown]

NARRATIVE: CASE EVENT DATE: 20210504
